FAERS Safety Report 24777382 (Version 1)
Quarter: 2024Q4

REPORT INFORMATION
  Report Type: Spontaneous
  Country: US (occurrence: US)
  Receive Date: 20241226
  Receipt Date: 20241226
  Transmission Date: 20250114
  Serious: No
  Sender: ROCHE
  Company Number: US-ROCHE-10000165124

PATIENT
  Sex: Female

DRUGS (1)
  1. TECENTRIQ HYBREZA [Suspect]
     Active Substance: ATEZOLIZUMAB\HYALURONIDASE-TQJS
     Indication: Small cell lung cancer
     Route: 058

REACTIONS (1)
  - Burning sensation [Unknown]
